FAERS Safety Report 11597799 (Version 1)
Quarter: 2015Q4

REPORT INFORMATION
  Report Type: Spontaneous
  Country: AU (occurrence: AU)
  Receive Date: 20151006
  Receipt Date: 20151006
  Transmission Date: 20160304
  Serious: Yes (Life-Threatening, Hospitalization, Other)
  Sender: FDA-Public Use
  Company Number: AU-HQ SPECIALTY-AU-2015INT000565

PATIENT
  Age: 5 Year
  Sex: Female

DRUGS (8)
  1. CISPLATIN. [Suspect]
     Active Substance: CISPLATIN
     Dosage: 75% REDUCTION, DAY 1, 29-DAY CYCLE 4
  2. VINCRISTINE                        /00078802/ [Suspect]
     Active Substance: VINCRISTINE
     Dosage: FULL-DOSE, DAY 1 AND 8, 29-DAY CYCLE 4, 5 AND 6
  3. CYCLOPHOSPHAMIDE. [Suspect]
     Active Substance: CYCLOPHOSPHAMIDE
     Indication: MEDULLOBLASTOMA
     Dosage: 1000 MG/M2, DAY 2 AND 3, 29-DAY CYCLE 1 AND 2
  4. CISPLATIN. [Suspect]
     Active Substance: CISPLATIN
     Indication: MEDULLOBLASTOMA
     Dosage: 75 MG/M2, DAY 1, 29-DAY CYCLE 1 AND 2
  5. CISPLATIN. [Suspect]
     Active Substance: CISPLATIN
     Dosage: 50% REDUCTION, DAY 1, 29-DAY CYCLE 3
  6. VINCRISTINE                        /00078802/ [Suspect]
     Active Substance: VINCRISTINE
     Indication: MEDULLOBLASTOMA
     Dosage: 1.5 MG/M2, DAY 1 AND 8, 29-DAY CYCLE 1 AND 2
  7. CYCLOPHOSPHAMIDE. [Suspect]
     Active Substance: CYCLOPHOSPHAMIDE
     Dosage: 25% DOSE REDUCTION, DAY 2 AND 3, 29-DAY CYCLE 3
  8. CYCLOPHOSPHAMIDE. [Suspect]
     Active Substance: CYCLOPHOSPHAMIDE
     Dosage: FULL-DOSE, DAY 2 AND 3, 29-DAY CYCLE 4, 5 AND 6

REACTIONS (20)
  - Alanine aminotransferase increased [Recovered/Resolved]
  - Abdominal tenderness [Recovered/Resolved]
  - Hyperbilirubinaemia [Recovered/Resolved]
  - Portal vein flow decreased [Recovered/Resolved]
  - Thrombocytopenia [Recovered/Resolved]
  - Hepatomegaly [Recovered/Resolved]
  - Weight increased [Recovered/Resolved]
  - Aspartate aminotransferase increased [Recovered/Resolved]
  - Ototoxicity [Unknown]
  - Liver tenderness [Recovered/Resolved]
  - Abdominal distension [Recovered/Resolved]
  - Hypoalbuminaemia [Recovered/Resolved]
  - Pleural effusion [Recovered/Resolved]
  - Parainfluenzae virus infection [Recovered/Resolved]
  - Ascites [Recovered/Resolved]
  - Haemoglobin decreased [Recovered/Resolved]
  - Liver disorder [Recovered/Resolved]
  - Haematopoietic stem cell mobilisation [Recovering/Resolving]
  - Venoocclusive liver disease [Recovered/Resolved]
  - Pyrexia [Recovered/Resolved]
